FAERS Safety Report 8979185 (Version 2)
Quarter: 2013Q1

REPORT INFORMATION
  Report Type: Spontaneous
  Country: JP (occurrence: JP)
  Receive Date: 20121221
  Receipt Date: 20130124
  Transmission Date: 20140127
  Serious: Yes (Other)
  Sender: FDA-Public Use
  Company Number: JP-PFIZER INC-2012322563

PATIENT
  Age: 49 Year
  Sex: Male
  Weight: 86 kg

DRUGS (2)
  1. SUTENT [Suspect]
     Indication: RENAL CELL CARCINOMA
     Dosage: 50 MG, 1X/DAY CYCLIC
     Route: 048
     Dates: start: 20100609, end: 20100831
  2. SUTENT [Suspect]
     Dosage: 37.5 MG, 1X/DAY CYCLIC
     Route: 048
     Dates: start: 20100901, end: 20121218

REACTIONS (2)
  - Haemorrhage subcutaneous [Recovering/Resolving]
  - Conjunctival haemorrhage [Recovering/Resolving]
